FAERS Safety Report 8283685-1 (Version None)
Quarter: 2012Q2

REPORT INFORMATION
  Report Type: 
  Country: None (occurrence: None)
  Receive Date: 20120413
  Receipt Date: 20120411
  Transmission Date: 20120825
  Serious: Yes (Other)
  Sender: FDA-Public Use
  Company Number: JP-PFIZER INC-2012090553

PATIENT
  Age: 60 Year
  Sex: Male

DRUGS (2)
  1. LYRICA [Suspect]
     Indication: HERNIA PAIN
     Dosage: 25 MG IN THE MORNING, 75 MG IN THE EVENING
     Route: 048
  2. CLEAMINE [Concomitant]
     Dosage: UNK

REACTIONS (2)
  - DIZZINESS [None]
  - ROAD TRAFFIC ACCIDENT [None]
